FAERS Safety Report 5012985-3 (Version None)
Quarter: 2006Q2

REPORT INFORMATION
  Report Type: 
  Country: None (occurrence: None)
  Receive Date: 20060530
  Receipt Date: 20060517
  Transmission Date: 20061013
  Serious: Yes (Hospitalization)
  Sender: FDA-Public Use
  Company Number: 2006AP02289

PATIENT
  Age: 54 Year
  Sex: Female

DRUGS (4)
  1. IRESSA [Suspect]
     Indication: LUNG ADENOCARCINOMA
     Route: 048
     Dates: start: 20051013, end: 20060420
  2. MINOCYCLINE HCL [Concomitant]
     Route: 048
     Dates: start: 20060117, end: 20060122
  3. RINDERON VG [Concomitant]
  4. NIZORAL [Concomitant]

REACTIONS (3)
  - IMPETIGO [None]
  - RASH [None]
  - STAPHYLOCOCCAL INFECTION [None]
